FAERS Safety Report 9564870 (Version 3)
Quarter: 2014Q1

REPORT INFORMATION
  Report Type: Spontaneous
  Country: US (occurrence: US)
  Receive Date: 20130930
  Receipt Date: 20140107
  Transmission Date: 20141002
  Serious: No
  Sender: FDA-Public Use
  Company Number: US-PFIZER INC-2013275693

PATIENT
  Age: 66 Year
  Sex: Female
  Weight: 112.9 kg

DRUGS (16)
  1. INLYTA [Suspect]
     Indication: MALIGNANT URINARY TRACT NEOPLASM
     Dosage: 5 MG, 2X/DAY
     Route: 048
     Dates: start: 20130818
  2. PRILOSEC [Concomitant]
     Dosage: 40 MG, 3X/DAY
  3. TYLENOL [Concomitant]
     Dosage: 325 MG, DAILY
  4. IPRATROPIUM/ALBUTEROL [Concomitant]
     Dosage: UNK, DAILY
     Route: 055
  5. LOFIBRA [Concomitant]
     Dosage: 200 MG, DAILY
  6. LEXAPRO [Concomitant]
     Dosage: 10 MG, DAILY
  7. CALCIUM CARBONATE W/VITAMIN D [Concomitant]
     Dosage: CALCIUM CARBONATE 600 MG/ VITAMIN D 400 MG, DAILY
  8. LANTUS [Concomitant]
     Dosage: 50 IU, 2X/DAY
  9. SPIRIVA [Concomitant]
     Dosage: 18 UG, DAILY
  10. FIBERCON [Concomitant]
     Dosage: UNK, DAILY
     Route: 048
  11. LASIX [Concomitant]
     Dosage: 20 MG, DAILY
  12. VICTOZA [Concomitant]
     Dosage: 18 MG/3ML, DAILY
  13. QVAR [Concomitant]
     Dosage: 40 MCG/ACT, 2X/DAY
     Route: 055
  14. IRON [Concomitant]
     Dosage: 325 (65 FE) MG, 2X/DAY
  15. SYNTHROID [Concomitant]
     Dosage: 50 UG, 2X/DAY
  16. LEVOTHROID [Concomitant]
     Dosage: 50 UG, 2X/DAY

REACTIONS (16)
  - Fatigue [Unknown]
  - Dysphonia [Unknown]
  - Nausea [Unknown]
  - Hypothyroidism [Unknown]
  - Diarrhoea [Unknown]
  - Palmar-plantar erythrodysaesthesia syndrome [Unknown]
  - Upper respiratory tract infection [Recovering/Resolving]
  - Urinary tract infection [Recovering/Resolving]
  - Stress [Unknown]
  - Pain in extremity [Unknown]
  - Skin exfoliation [Unknown]
  - Limb discomfort [Unknown]
  - Glossodynia [Unknown]
  - Gingival pain [Unknown]
  - Hyperkeratosis [Unknown]
  - Skin fissures [Unknown]
